FAERS Safety Report 6886089-9 (Version None)
Quarter: 2010Q3

REPORT INFORMATION
  Report Type: 
  Country: None (occurrence: None)
  Receive Date: 20100729
  Receipt Date: 20080505
  Transmission Date: 20110219
  Serious: Yes (Other)
  Sender: FDA-Public Use
  Company Number: US-PFIZER INC-2008039176

PATIENT
  Sex: Female
  Weight: 83.9 kg

DRUGS (2)
  1. CELEBREX [Suspect]
     Indication: ARTHRITIS
  2. DIURETICS [Concomitant]
     Indication: HYPERTENSION

REACTIONS (4)
  - CEREBROVASCULAR ACCIDENT [None]
  - CONTUSION [None]
  - FIBROMYALGIA [None]
  - SKIN DISCOLOURATION [None]
